FAERS Safety Report 7935430-4 (Version None)
Quarter: 2011Q4

REPORT INFORMATION
  Report Type: 
  Country: None (occurrence: None)
  Receive Date: 20111122
  Receipt Date: 20111116
  Transmission Date: 20120403
  Serious: Yes (Hospitalization, Other)
  Sender: FDA-Public Use
  Company Number: US-AMGEN-USASP2011056775

PATIENT
  Age: 71 Year
  Sex: Female
  Weight: 70.295 kg

DRUGS (6)
  1. CALCIUM [Concomitant]
  2. TYLENOL (CAPLET) [Concomitant]
     Dosage: 1000 UNK, UNK
  3. NPLATE [Suspect]
     Indication: IDIOPATHIC THROMBOCYTOPENIC PURPURA
     Dosage: 420 MUG, UNK
     Dates: start: 20110713, end: 20111005
  4. BENADRYL [Concomitant]
     Dosage: 25 MG, UNK
  5. IMMUNE GLOBULIN NOS [Concomitant]
     Indication: IDIOPATHIC THROMBOCYTOPENIC PURPURA
     Dosage: 70 G, QWK
  6. VITAMINS NOS [Concomitant]

REACTIONS (3)
  - HOSPITALISATION [None]
  - PLATELET COUNT ABNORMAL [None]
  - THERAPEUTIC RESPONSE DECREASED [None]
